FAERS Safety Report 15187057 (Version 2)
Quarter: 2019Q1

REPORT INFORMATION
  Report Type: Report from Study
  Country: US (occurrence: US)
  Receive Date: 20180723
  Receipt Date: 20190130
  Transmission Date: 20190417
  Serious: No
  Sender: FDA-Public Use
  Company Number: US-EXELIXIS-CABO-18013966

PATIENT
  Sex: Male

DRUGS (21)
  1. CABOMETYX [Suspect]
     Active Substance: CABOZANTINIB S-MALATE
     Indication: RENAL CANCER
     Dosage: 60 MG, QD
     Dates: start: 20170815
  2. XGEVA [Concomitant]
     Active Substance: DENOSUMAB
  3. WARFARIN [Concomitant]
     Active Substance: WARFARIN
  4. OMEGA 3 [Concomitant]
     Active Substance: OMEGA-3 FATTY ACIDS
  5. CODEINE SULFATE. [Concomitant]
     Active Substance: CODEINE SULFATE
  6. METOPROLOL. [Concomitant]
     Active Substance: METOPROLOL
  7. OXYCODONE [Concomitant]
     Active Substance: OXYCODONE
  8. CALTRATE [Concomitant]
     Active Substance: CALCIUM CARBONATE
  9. IMDUR [Concomitant]
     Active Substance: ISOSORBIDE MONONITRATE
  10. TYLENOL 8HR [Concomitant]
     Active Substance: ACETAMINOPHEN
  11. ASPIRIN. [Concomitant]
     Active Substance: ASPIRIN
  12. LIPITOR [Concomitant]
     Active Substance: ATORVASTATIN CALCIUM
  13. LEVOTHYROXINE. [Concomitant]
     Active Substance: LEVOTHYROXINE
  14. LANTUS [Concomitant]
     Active Substance: INSULIN GLARGINE
  15. ONE DAILY MEN^S HEALTH [Concomitant]
  16. FLOMAX [Concomitant]
     Active Substance: TAMSULOSIN HYDROCHLORIDE
     Dosage: UNK
  17. CABOMETYX [Suspect]
     Active Substance: CABOZANTINIB S-MALATE
     Indication: NEOPLASM MALIGNANT
     Dosage: 20 MG, QD
     Route: 048
  18. NORVASC [Concomitant]
     Active Substance: AMLODIPINE BESYLATE
  19. GELCLAIR [Concomitant]
  20. VITAMIN D [Concomitant]
     Active Substance: CHOLECALCIFEROL
  21. RESVERATROL [Concomitant]
     Active Substance: DIETARY SUPPLEMENT\RESVERATROL

REACTIONS (3)
  - Stomatitis [Unknown]
  - Glossodynia [Not Recovered/Not Resolved]
  - Diarrhoea [Not Recovered/Not Resolved]
